FAERS Safety Report 15859027 (Version 1)
Quarter: 2019Q1

REPORT INFORMATION
  Report Type: Spontaneous
  Country: JP (occurrence: JP)
  Receive Date: 20190123
  Receipt Date: 20190123
  Transmission Date: 20190417
  Serious: Yes (Other)
  Sender: FDA-Public Use
  Company Number: JP-GLAXOSMITHKLINE-JP2019JPN007118

PATIENT
  Sex: Female

DRUGS (5)
  1. FLUTIFORM AEROSOL [Suspect]
     Active Substance: FLUTICASONE PROPIONATE\FORMOTEROL FUMARATE
     Indication: ASTHMA
     Dosage: UNK
     Route: 055
  2. SERETIDE [Suspect]
     Active Substance: FLUTICASONE PROPIONATE\SALMETEROL XINAFOATE
     Indication: ASTHMA
     Dosage: UNK
     Route: 055
  3. CLARITHROMYCIN. [Concomitant]
     Active Substance: CLARITHROMYCIN
     Indication: DIFFUSE PANBRONCHIOLITIS
     Dosage: UNK
  4. SYMBICORT [Suspect]
     Active Substance: BUDESONIDE\FORMOTEROL FUMARATE DIHYDRATE
     Indication: ASTHMA
     Dosage: UNK
     Route: 055
  5. ERYTHROMYCIN. [Concomitant]
     Active Substance: ERYTHROMYCIN
     Indication: DIFFUSE PANBRONCHIOLITIS
     Dosage: UNK

REACTIONS (12)
  - Upper-airway cough syndrome [Recovering/Resolving]
  - Diffuse panbronchiolitis [Recovering/Resolving]
  - Nasal disorder [Recovering/Resolving]
  - Productive cough [Recovering/Resolving]
  - Pneumonia [Recovering/Resolving]
  - Streptococcus test positive [Unknown]
  - Chest discomfort [Recovering/Resolving]
  - Chronic sinusitis [Recovering/Resolving]
  - Haemophilus test positive [Unknown]
  - Drug effect incomplete [Unknown]
  - Dyspnoea exertional [Recovering/Resolving]
  - Sputum discoloured [Recovering/Resolving]
